FAERS Safety Report 18049318 (Version 1)
Quarter: 2020Q3

REPORT INFORMATION
  Report Type: Spontaneous
  Country: US (occurrence: US)
  Receive Date: 20200721
  Receipt Date: 20200721
  Transmission Date: 20201103
  Serious: No
  Sender: FDA-Public Use
  Company Number: None

PATIENT
  Age: 74 Year
  Sex: Female
  Weight: 66.2 kg

DRUGS (12)
  1. AMITRIPTYLINE [Concomitant]
     Active Substance: AMITRIPTYLINE
  2. CLONAZEPAM. [Concomitant]
     Active Substance: CLONAZEPAM
  3. ESCITALOPRAM [Concomitant]
     Active Substance: ESCITALOPRAM OXALATE
  4. FETZIMA [Concomitant]
     Active Substance: LEVOMILNACIPRAN HYDROCHLORIDE
  5. LETROZOLE. [Concomitant]
     Active Substance: LETROZOLE
  6. LEVOTHYROXINE SOIDUM [Concomitant]
  7. WARFARIN SODIUM. [Concomitant]
     Active Substance: WARFARIN SODIUM
  8. CAPECITABINE. [Suspect]
     Active Substance: CAPECITABINE
     Indication: NEOPLASM MALIGNANT
     Route: 048
     Dates: start: 20200508
  9. DEXAMETHASONE. [Concomitant]
     Active Substance: DEXAMETHASONE
  10. GABAPENTIN. [Concomitant]
     Active Substance: GABAPENTIN
  11. AMBIEN [Concomitant]
     Active Substance: ZOLPIDEM TARTRATE
  12. IMODIUM [Concomitant]
     Active Substance: LOPERAMIDE HYDROCHLORIDE

REACTIONS (3)
  - Diarrhoea [None]
  - Asthenia [None]
  - Hypotension [None]

NARRATIVE: CASE EVENT DATE: 20200721
